FAERS Safety Report 19905211 (Version 1)
Quarter: 2021Q4

REPORT INFORMATION
  Report Type: Spontaneous
  Country: US (occurrence: US)
  Receive Date: 20211001
  Receipt Date: 20211001
  Transmission Date: 20220303
  Serious: No
  Sender: FDA-Public Use
  Company Number: US-DRREDDYS-SPO/USA/21/0142249

PATIENT
  Age: 15 Year
  Sex: Male

DRUGS (6)
  1. RISPERIDONE [Suspect]
     Active Substance: RISPERIDONE
     Indication: Malignant catatonia
     Route: 048
  2. RISPERIDONE [Suspect]
     Active Substance: RISPERIDONE
     Indication: Psychotic symptom
     Route: 048
  3. RISPERIDONE [Suspect]
     Active Substance: RISPERIDONE
     Route: 048
  4. LORAZEPAM [Suspect]
     Active Substance: LORAZEPAM
     Indication: Psychotic symptom
     Dosage: 2MG P.O. Q.A.M. AND 4 MG P.O. Q.H.S.
     Route: 048
  5. LORAZEPAM [Suspect]
     Active Substance: LORAZEPAM
     Indication: Malignant catatonia
     Dosage: 2MG P.O. Q.A.M. AND 4 MG P.O. Q.H.S.
     Route: 048
  6. LORAZEPAM [Suspect]
     Active Substance: LORAZEPAM
     Route: 048

REACTIONS (1)
  - Sedation [Unknown]
